FAERS Safety Report 5092873-7 (Version None)
Quarter: 2006Q3

REPORT INFORMATION
  Report Type: 
  Country: None (occurrence: None)
  Receive Date: 20060727
  Receipt Date: 20060621
  Transmission Date: 20061208
  Serious: Yes (Other)
  Sender: FDA-Public Use
  Company Number: 2006079879

PATIENT
  Age: 74 Year
  Sex: Male

DRUGS (9)
  1. LYRICA [Suspect]
     Indication: MUSCLE SPASMS
     Dosage: (3 IN 1 D),ORAL
     Route: 048
     Dates: start: 20060616, end: 20060618
  2. PLAVIX [Concomitant]
  3. LOTREL [Concomitant]
  4. TOPROL-XL [Concomitant]
  5. ASPIRIN [Concomitant]
  6. VITAMINS (VITAMINS) [Concomitant]
  7. ZINC (ZINC) [Concomitant]
  8. STOOL SOFTENER (DOCUSATE SODIUM) [Concomitant]
  9. QUININE SULFATE [Concomitant]

REACTIONS (4)
  - DRY MOUTH [None]
  - HYPOAESTHESIA [None]
  - LIMB DISCOMFORT [None]
  - OEDEMA [None]
